FAERS Safety Report 24849751 (Version 1)
Quarter: 2025Q1

REPORT INFORMATION
  Report Type: Spontaneous
  Country: US (occurrence: US)
  Receive Date: 20250116
  Receipt Date: 20250116
  Transmission Date: 20250408
  Serious: Yes (Other)
  Sender: DR REDDYS
  Company Number: US-DRL-USA-USA/2025/01/000655

PATIENT
  Age: 14 Year
  Sex: Male

DRUGS (27)
  1. DECITABINE [Suspect]
     Active Substance: DECITABINE
     Indication: Immune thrombocytopenia
  2. IMATINIB [Suspect]
     Active Substance: IMATINIB
     Indication: Philadelphia positive acute lymphocytic leukaemia
     Dosage: DAYS 1-32
  3. CYCLOPHOSPHAMIDE [Suspect]
     Active Substance: CYCLOPHOSPHAMIDE
     Indication: Philadelphia positive acute lymphocytic leukaemia
     Route: 042
  4. CYCLOPHOSPHAMIDE [Suspect]
     Active Substance: CYCLOPHOSPHAMIDE
     Indication: Prophylaxis against graft versus host disease
  5. MERCAPTOPURINE [Suspect]
     Active Substance: MERCAPTOPURINE
     Indication: Philadelphia positive acute lymphocytic leukaemia
     Route: 048
  6. TACROLIMUS [Suspect]
     Active Substance: TACROLIMUS
     Indication: Prophylaxis against graft versus host disease
  7. MYCOPHENOLATE MOFETIL [Suspect]
     Active Substance: MYCOPHENOLATE MOFETIL
     Indication: Prophylaxis against graft versus host disease
  8. CYTARABINE [Concomitant]
     Active Substance: CYTARABINE
     Indication: Philadelphia positive acute lymphocytic leukaemia
     Route: 037
  9. CYTARABINE [Concomitant]
     Active Substance: CYTARABINE
     Route: 042
  10. VINCRISTINE [Concomitant]
     Active Substance: VINCRISTINE
     Indication: Philadelphia positive acute lymphocytic leukaemia
  11. VINCRISTINE [Concomitant]
     Active Substance: VINCRISTINE
  12. DAUNORUBICIN [Concomitant]
     Active Substance: DAUNORUBICIN
     Indication: Philadelphia positive acute lymphocytic leukaemia
  13. DAUNORUBICIN [Concomitant]
     Active Substance: DAUNORUBICIN
  14. PREDNISONE [Concomitant]
     Active Substance: PREDNISONE
     Indication: Philadelphia positive acute lymphocytic leukaemia
     Dosage: BID DAYS 1-14
  15. PREDNISONE [Concomitant]
     Active Substance: PREDNISONE
     Dosage: BID DAYS 15-28
  16. PEGASPARGASE [Concomitant]
     Active Substance: PEGASPARGASE
     Indication: Philadelphia positive acute lymphocytic leukaemia
  17. METHOTREXATE [Concomitant]
     Active Substance: METHOTREXATE
     Indication: Philadelphia positive acute lymphocytic leukaemia
     Route: 037
  18. METHOTREXATE [Concomitant]
     Active Substance: METHOTREXATE
     Route: 037
  19. METHOTREXATE [Concomitant]
     Active Substance: METHOTREXATE
     Route: 037
  20. DASATINIB [Concomitant]
     Active Substance: DASATINIB
     Indication: Philadelphia positive acute lymphocytic leukaemia
     Dosage: DAILY DAYS 1-28
     Route: 048
  21. BLINATUMOMAB [Concomitant]
     Active Substance: BLINATUMOMAB
     Indication: Philadelphia positive acute lymphocytic leukaemia
     Route: 042
  22. BLINATUMOMAB [Concomitant]
     Active Substance: BLINATUMOMAB
     Route: 042
  23. BLINATUMOMAB [Concomitant]
     Active Substance: BLINATUMOMAB
     Route: 042
  24. ELTROMBOPAG [Concomitant]
     Active Substance: ELTROMBOPAG
     Indication: Immune thrombocytopenia
  25. ROMIPLOSTIM [Concomitant]
     Active Substance: ROMIPLOSTIM
     Indication: Immune thrombocytopenia
  26. HUMAN IMMUNOGLOBULIN G [Concomitant]
     Active Substance: HUMAN IMMUNOGLOBULIN G
     Indication: Immune thrombocytopenia
  27. RITUXIMAB [Concomitant]
     Active Substance: RITUXIMAB
     Indication: Immune thrombocytopenia

REACTIONS (4)
  - Drug ineffective [Unknown]
  - Adenovirus infection [Unknown]
  - Enterobacter infection [Unknown]
  - Product use in unapproved indication [Unknown]
